FAERS Safety Report 13755468 (Version 1)
Quarter: 2017Q3

REPORT INFORMATION
  Report Type: Report from Study
  Country: US (occurrence: US)
  Receive Date: 20170714
  Receipt Date: 20170714
  Transmission Date: 20171127
  Serious: No
  Sender: FDA-Public Use
  Company Number: US-AMGEN-USASL2017104389

PATIENT
  Sex: Male

DRUGS (3)
  1. ENBREL [Suspect]
     Active Substance: ETANERCEPT
     Indication: ANKYLOSING SPONDYLITIS
     Dosage: 50 MG, QWK
     Route: 065
     Dates: start: 201509, end: 2016
  2. ENBREL [Suspect]
     Active Substance: ETANERCEPT
     Dosage: 50 MG, Q2WK
     Route: 065
     Dates: start: 2016
  3. NAPROXEN. [Concomitant]
     Active Substance: NAPROXEN
     Indication: BACK PAIN
     Dosage: UNK, ONCE OR TWICE A WEEK

REACTIONS (10)
  - Feeling abnormal [Recovered/Resolved]
  - Constipation [Not Recovered/Not Resolved]
  - Haematospermia [Unknown]
  - Abdominal mass [Unknown]
  - Headache [Recovered/Resolved]
  - Visual impairment [Recovered/Resolved]
  - Abdominal pain [Unknown]
  - Dizziness [Recovered/Resolved]
  - Oedema peripheral [Not Recovered/Not Resolved]
  - Chills [Recovered/Resolved]

NARRATIVE: CASE EVENT DATE: 2017
